FAERS Safety Report 23282686 (Version 3)
Quarter: 2024Q3

REPORT INFORMATION
  Report Type: Spontaneous
  Country: US (occurrence: US)
  Receive Date: 20231211
  Receipt Date: 20240813
  Transmission Date: 20241017
  Serious: No
  Sender: BRISTOL MYERS SQUIBB
  Company Number: US-BRISTOL-MYERS SQUIBB COMPANY-2023-178859

PATIENT
  Age: 85 Year
  Sex: Male
  Weight: 63.5 kg

DRUGS (1)
  1. POMALYST [Suspect]
     Active Substance: POMALIDOMIDE
     Indication: Plasma cell myeloma
     Route: 048

REACTIONS (4)
  - Illness [Unknown]
  - Fall [Recovering/Resolving]
  - Back pain [Recovering/Resolving]
  - Nausea [Unknown]
